FAERS Safety Report 10361936 (Version 1)
Quarter: 2014Q1

REPORT INFORMATION
  Report Type: Spontaneous
  Country: US (occurrence: None)
  Receive Date: 20140306
  Receipt Date: 20140306
  Transmission Date: 20141002
  Serious: Yes (Other)
  Sender: FDA-Public Use
  Company Number: 163-21880-13074890

PATIENT
  Age: 61 Year
  Sex: Male
  Weight: 78 kg

DRUGS (11)
  1. REVLIMID [Suspect]
     Indication: PLASMA CELL MYELOMA
     Route: 048
     Dates: start: 201201
  2. SENOKOT (SENNA FRUIT) (TABLETS) [Concomitant]
  3. VITAMIN D3 (COLECALCIFEROL) (CAPSULES) [Concomitant]
  4. CYANOCOBALAMIN (CYANOCOBALAMIN) [Concomitant]
  5. RAMIPRIL (RAMIPRIL) (CAPSULES) [Concomitant]
  6. PRAVASTATIN SODIUM (PRAVASTATIN SODIUM) (TABLETS) [Concomitant]
  7. WARFARIN SODIUM (WARFARIN SODIUM) (TABLETS) [Concomitant]
  8. MULTIVITAMINS (MULTIVITAMINS) (TABLETS) [Concomitant]
  9. ADVIL (IBUPROFEN) (TABLETS) [Concomitant]
  10. FISH OIL (FISH OIL) [Concomitant]
  11. ZETIA (EZETIMIBE) (TABLETS) [Concomitant]

REACTIONS (1)
  - Thrombosis [None]
